FAERS Safety Report 8356673-4 (Version None)
Quarter: 2012Q2

REPORT INFORMATION
  Report Type: 
  Country: None (occurrence: None)
  Receive Date: 20120514
  Receipt Date: 20120505
  Transmission Date: 20120825
  Serious: Yes (Hospitalization, Other)
  Sender: FDA-Public Use
  Company Number: US-CUBIST-2012S1000363

PATIENT
  Age: 69 Year
  Sex: Male

DRUGS (5)
  1. PREDNISONE TAB [Concomitant]
     Indication: PRODUCT USED FOR UNKNOWN INDICATION
     Dates: start: 20120201
  2. PREDNISONE TAB [Concomitant]
  3. COUMADIN [Concomitant]
     Indication: EMBOLISM
  4. PREDNISONE TAB [Concomitant]
  5. CUBICIN [Suspect]
     Indication: INFECTION
     Dosage: DOSE UNIT:U UNKNOWN
     Route: 042

REACTIONS (4)
  - EOSINOPHILIC PNEUMONIA [None]
  - THROMBOSIS [None]
  - NASOPHARYNGITIS [None]
  - MYOPATHY [None]
